FAERS Safety Report 5649198-8 (Version None)
Quarter: 2008Q1

REPORT INFORMATION
  Report Type: 
  Country: None (occurrence: None)
  Receive Date: 20080131
  Receipt Date: 20071024
  Transmission Date: 20080703
  Serious: No
  Sender: FDA-Public Use
  Company Number: US200709006489

PATIENT
  Age: 63 Year
  Sex: Male

DRUGS (2)
  1. BYETTA [Suspect]
     Dosage: 10 UG, 2/D, SUBCUTANEOUS; 20 UG, OTHER, SUBCUTANEOUS
     Route: 058
  2. EXENATIDE (10MCG PEN, DISPOSABLE DEVICE (EXENATIDE PEN (10MCG)) PEN, D [Concomitant]

REACTIONS (1)
  - INCORRECT DOSE ADMINISTERED [None]
